FAERS Safety Report 16080587 (Version 3)
Quarter: 2021Q2

REPORT INFORMATION
  Report Type: Spontaneous
  Country: US (occurrence: US)
  Receive Date: 20190315
  Receipt Date: 20210407
  Transmission Date: 20210716
  Serious: No
  Sender: FDA-Public Use
  Company Number: US-PTC THERAPEUTICS, INC.-US-2019PTC000122

PATIENT
  Sex: Male

DRUGS (1)
  1. EMFLAZA [Suspect]
     Active Substance: DEFLAZACORT
     Indication: MUSCULAR DYSTROPHY
     Dosage: 30 MG, QD
     Route: 048

REACTIONS (10)
  - Swelling face [Unknown]
  - Weight increased [Unknown]
  - Pollakiuria [Unknown]
  - Breast swelling [Unknown]
  - Product dose omission issue [Unknown]
  - Peripheral swelling [Unknown]
  - Periorbital swelling [Unknown]
  - Swelling [Unknown]
  - Dark circles under eyes [Unknown]
  - Chromaturia [Unknown]
